FAERS Safety Report 8828975 (Version 1)
Quarter: 2012Q4

REPORT INFORMATION
  Report Type: 
  Country: TR (occurrence: TR)
  Receive Date: 20121008
  Receipt Date: 20121008
  Transmission Date: 20130627
  Serious: Yes (Hospitalization)
  Sender: FDA-Public Use
  Company Number: TR-US-EMD SERONO, INC.-7164482

PATIENT
  Sex: Male
  Weight: 58 kg

DRUGS (4)
  1. REBIF [Suspect]
     Indication: MULTIPLE SCLEROSIS
     Route: 058
     Dates: start: 201007
  2. VAXIGRIP [Suspect]
     Indication: INFLUENZA IMMUNISATION
     Route: 058
     Dates: start: 20120921
  3. PNEUMOCOCCAL VACCINE, POLYVALENT [Suspect]
     Indication: PNEUMOCOCCAL IMMUNISATION
     Route: 058
     Dates: start: 20120921
  4. PREDNOL [Suspect]
     Indication: PRODUCT USED FOR UNKNOWN INDICATION
     Route: 042
     Dates: start: 201109

REACTIONS (3)
  - Pain in extremity [Recovering/Resolving]
  - Erythema [Recovering/Resolving]
  - Pyrexia [Recovering/Resolving]
